FAERS Safety Report 20573704 (Version 3)
Quarter: 2022Q2

REPORT INFORMATION
  Report Type: Report from Study
  Country: DE (occurrence: DE)
  Receive Date: 20220309
  Receipt Date: 20220401
  Transmission Date: 20220721
  Serious: Yes (Hospitalization)
  Sender: FDA-Public Use
  Company Number: DE-NOVARTISPH-NVSC2022DE051573

PATIENT
  Age: 83 Year
  Sex: Male
  Weight: 55 kg

DRUGS (16)
  1. NAPORAFENIB [Suspect]
     Active Substance: NAPORAFENIB
     Indication: Malignant melanoma
     Dosage: UNK
     Route: 048
     Dates: end: 20220224
  2. TRAMETINIB [Suspect]
     Active Substance: TRAMETINIB
     Indication: Malignant melanoma
     Dosage: UNK
     Route: 048
     Dates: end: 20220224
  3. FENTANYL [Concomitant]
     Active Substance: FENTANYL
     Indication: Osteoarthritis
     Dosage: UNK
     Route: 065
     Dates: start: 20220126
  4. BISOPROLOL [Concomitant]
     Active Substance: BISOPROLOL
     Indication: Coronary artery disease
     Dosage: UNK
     Route: 065
     Dates: start: 20200525
  5. BISOPROLOL [Concomitant]
     Active Substance: BISOPROLOL
     Indication: Stent placement
  6. ASPIRIN [Concomitant]
     Active Substance: ASPIRIN
     Indication: Coronary artery disease
     Dosage: UNK
     Route: 065
     Dates: start: 20200525
  7. ASPIRIN [Concomitant]
     Active Substance: ASPIRIN
     Indication: Stent placement
  8. EZETIMIBE [Concomitant]
     Active Substance: EZETIMIBE
     Indication: Coronary artery disease
     Dosage: UNK
     Route: 065
     Dates: start: 20200525
  9. EZETIMIBE [Concomitant]
     Active Substance: EZETIMIBE
     Indication: Stent placement
  10. DUOGALEN [Concomitant]
     Indication: Skin reaction
     Dosage: UNK
     Route: 065
     Dates: start: 20220218
  11. OCTENIDINE\PHENOXYETHANOL [Concomitant]
     Active Substance: OCTENIDINE\PHENOXYETHANOL
     Indication: Skin reaction
     Dosage: UNK
     Route: 065
     Dates: start: 20220218
  12. AMOXICILLIN\CLAVULANATE POTASSIUM [Concomitant]
     Active Substance: AMOXICILLIN\CLAVULANATE POTASSIUM
     Indication: Urinary tract infection
     Dosage: UNK
     Route: 065
     Dates: start: 20220225
  13. CETAPHIL DAILY FACIAL MOISTURIZER WITH SUNCREEN SPF 50 [Concomitant]
     Active Substance: OCTINOXATE\OCTISALATE\OCTOCRYLENE\OXYBENZONE\TITANIUM DIOXIDE
     Indication: Skin reaction
     Dosage: UNK
     Route: 065
     Dates: start: 20220218
  14. ATORVASTATIN [Concomitant]
     Active Substance: ATORVASTATIN
     Indication: Coronary artery disease
     Dosage: UNK
     Route: 065
     Dates: start: 20200525
  15. ATORVASTATIN [Concomitant]
     Active Substance: ATORVASTATIN
     Indication: Stent placement
  16. METOCLOPRAMIDE [Concomitant]
     Active Substance: METOCLOPRAMIDE
     Indication: Vomiting
     Dosage: UNK
     Route: 065
     Dates: start: 20220222

REACTIONS (1)
  - Oral herpes [Recovering/Resolving]

NARRATIVE: CASE EVENT DATE: 20220302
